FAERS Safety Report 18621535 (Version 2)
Quarter: 2021Q2

REPORT INFORMATION
  Report Type: Report from Study
  Country: IL (occurrence: IL)
  Receive Date: 20201215
  Receipt Date: 20210508
  Transmission Date: 20210717
  Serious: Yes (Hospitalization, Other)
  Sender: FDA-Public Use
  Company Number: IL-TAKEDA-IL201944413

PATIENT

DRUGS (3)
  1. VELAGLUCERASE ALFA [Suspect]
     Active Substance: VELAGLUCERASE ALFA
     Indication: GAUCHER^S DISEASE
     Dosage: 15 INTERNATIONAL UNIT/KILOGRAM, Q2WEEKS
     Route: 065
     Dates: start: 20100119, end: 20200519
  2. CEREZYME [Concomitant]
     Active Substance: IMIGLUCERASE
     Indication: PRODUCT USED FOR UNKNOWN INDICATION
  3. VELAGLUCERASE ALFA [Suspect]
     Active Substance: VELAGLUCERASE ALFA
     Dosage: 8 DOSAGE FORM, 1X/2WKS
     Route: 042
     Dates: start: 20100120

REACTIONS (5)
  - Cardiac arrest [Not Recovered/Not Resolved]
  - Lymphadenopathy [Unknown]
  - Peripheral swelling [Recovering/Resolving]
  - Erythema [Recovered/Resolved]
  - Dandruff [Unknown]

NARRATIVE: CASE EVENT DATE: 20191216
